FAERS Safety Report 4351124-9 (Version None)
Quarter: 2004Q2

REPORT INFORMATION
  Report Type: 
  Country: None (occurrence: None)
  Receive Date: 20040430
  Receipt Date: 20030930
  Transmission Date: 20050107
  Serious: Yes (Death, Hospitalization)
  Sender: FDA-Public Use
  Company Number: US-MERCK-0310USA00329

PATIENT
  Age: 86 Year
  Sex: Female

DRUGS (19)
  1. ZOCOR [Suspect]
     Route: 048
     Dates: start: 20020529, end: 20020624
  2. ZOCOR [Suspect]
     Route: 048
     Dates: start: 20020712, end: 20020911
  3. ZOCOR [Suspect]
     Route: 048
     Dates: start: 20020901, end: 20030201
  4. ALBUTEROL [Concomitant]
     Indication: DYSPNOEA
     Route: 065
  5. COMBIVENT [Concomitant]
     Indication: DYSPNOEA
     Route: 065
  6. FOSAMAX [Concomitant]
     Route: 048
  7. ASPIRIN [Concomitant]
     Route: 048
  8. PLAVIX [Concomitant]
     Route: 048
  9. FLOVENT [Concomitant]
     Route: 065
  10. ADVAIR DISKUS 100/50 [Concomitant]
     Route: 055
  11. HYDRALAZINE [Concomitant]
     Route: 048
  12. ATROVENT [Concomitant]
     Indication: DYSPNOEA
     Route: 065
  13. LACTULOSE [Concomitant]
     Indication: CONSTIPATION
     Route: 048
  14. SYNTHROID [Concomitant]
     Route: 048
  15. ATIVAN [Concomitant]
     Route: 065
     Dates: end: 20030222
  16. OXYGEN [Concomitant]
     Route: 055
  17. ALTACE [Concomitant]
     Route: 048
  18. ZOLOFT [Concomitant]
     Route: 048
     Dates: end: 20030101
  19. ZOCOR [Suspect]
     Route: 048
     Dates: start: 20000414, end: 20020528

REACTIONS (30)
  - AORTIC ATHEROSCLEROSIS [None]
  - BLOOD URINE [None]
  - CARDIOMEGALY [None]
  - CONFUSIONAL STATE [None]
  - DEATH [None]
  - DECUBITUS ULCER [None]
  - DELIRIUM [None]
  - DIARRHOEA [None]
  - DYSARTHRIA [None]
  - ELECTROCARDIOGRAM ST-T CHANGE [None]
  - ELECTROCARDIOGRAM T WAVE ABNORMAL [None]
  - EMPHYSEMA [None]
  - FAILURE TO THRIVE [None]
  - HALLUCINATION, VISUAL [None]
  - HEADACHE [None]
  - HYPOTHYROIDISM [None]
  - LABILE HYPERTENSION [None]
  - MALNUTRITION [None]
  - MEMORY IMPAIRMENT [None]
  - MITRAL VALVE INCOMPETENCE [None]
  - OBSTRUCTIVE CHRONIC BRONCHITIS WITH ACUTE EXACERBATION [None]
  - ORAL CANDIDIASIS [None]
  - OROPHARYNGEAL CANDIDIASIS [None]
  - PARANOIA [None]
  - PULMONARY HYPERTENSION [None]
  - RHABDOMYOLYSIS [None]
  - SOMNOLENCE [None]
  - TRICUSPID VALVE INCOMPETENCE [None]
  - UROSEPSIS [None]
  - VENTRICULAR HYPERTROPHY [None]
